FAERS Safety Report 14963540 (Version 1)
Quarter: 2018Q2

REPORT INFORMATION
  Report Type: Spontaneous
  Country: CN (occurrence: CN)
  Receive Date: 20180601
  Receipt Date: 20180601
  Transmission Date: 20180711
  Serious: Yes (Death)
  Sender: FDA-Public Use
  Company Number: CN-PFIZER INC-2018224270

PATIENT
  Age: 42 Day
  Sex: Female
  Weight: 4.8 kg

DRUGS (12)
  1. MEROPENEM. [Suspect]
     Active Substance: MEROPENEM
     Indication: PERTUSSIS
     Dosage: UNK
  2. ERYTHROMYCIN. [Suspect]
     Active Substance: ERYTHROMYCIN
     Indication: PERTUSSIS
     Dosage: UNK
     Route: 042
  3. VANCOMYCIN [Suspect]
     Active Substance: VANCOMYCIN
     Indication: RESPIRATORY DISTRESS
  4. CEFOPERAZONE SODIUM/SULBACTAM SODIUM [Suspect]
     Active Substance: CEFOPERAZONE SODIUM\SULBACTAM SODIUM
     Indication: PNEUMONIA
     Dosage: UNK
     Route: 042
  5. MANNITOL. [Concomitant]
     Active Substance: MANNITOL
     Indication: TACHYCARDIA
     Dosage: UNK
  6. MANNITOL. [Concomitant]
     Active Substance: MANNITOL
     Indication: TONIC CONVULSION
  7. PHENOBARBITAL. [Concomitant]
     Active Substance: PHENOBARBITAL
     Indication: TACHYCARDIA
  8. ERYTHROMYCIN. [Suspect]
     Active Substance: ERYTHROMYCIN
     Indication: RESPIRATORY DISTRESS
  9. PHENOBARBITAL. [Concomitant]
     Active Substance: PHENOBARBITAL
     Indication: TONIC CONVULSION
     Dosage: UNK
  10. PHENOBARBITAL. [Concomitant]
     Active Substance: PHENOBARBITAL
     Indication: HYPOXIA
  11. VANCOMYCIN [Suspect]
     Active Substance: VANCOMYCIN
     Indication: PERTUSSIS
     Dosage: UNK
     Route: 042
  12. MANNITOL. [Concomitant]
     Active Substance: MANNITOL
     Indication: HYPOXIA

REACTIONS (18)
  - Continuous haemodiafiltration [None]
  - Streptococcus test positive [None]
  - Respiratory distress [None]
  - Tachycardia [None]
  - Lymphocyte percentage increased [None]
  - Liver function test abnormal [None]
  - Blood sodium decreased [None]
  - Renal function test abnormal [None]
  - Hyperleukocytosis [None]
  - Disseminated intravascular coagulation [None]
  - Pulmonary hypertension [None]
  - Multiple organ dysfunction syndrome [None]
  - Anaemia [None]
  - Tonic convulsion [None]
  - Treatment failure [None]
  - Drug ineffective [Fatal]
  - Thrombocytosis [None]
  - Hypoxia [None]
